FAERS Safety Report 11636718 (Version 2)
Quarter: 2015Q4

REPORT INFORMATION
  Report Type: Other
  Country: IT (occurrence: IT)
  Receive Date: 20151016
  Receipt Date: 20151028
  Transmission Date: 20160304
  Serious: Yes (Other)
  Sender: FDA-Public Use
  Company Number: IT-MYLANLABS-2015M1034979

PATIENT

DRUGS (16)
  1. QUETIAPINA [Suspect]
     Active Substance: QUETIAPINE
     Indication: BIPOLAR DISORDER
  2. ZUCLOPENTHIXOL DECANOATE [Suspect]
     Active Substance: ZUCLOPENTHIXOL DECANOATE
     Indication: OBSESSIVE-COMPULSIVE DISORDER
  3. LORAZEPAM. [Suspect]
     Active Substance: LORAZEPAM
     Indication: PSYCHOTIC DISORDER
  4. ZUCLOPENTHIXOL DECANOATE [Suspect]
     Active Substance: ZUCLOPENTHIXOL DECANOATE
     Indication: BIPOLAR DISORDER
     Dosage: 200 MG, CYCLE
     Route: 030
  5. LORAZEPAM. [Suspect]
     Active Substance: LORAZEPAM
     Indication: BIPOLAR DISORDER
  6. LITHIUM CARBONATE. [Suspect]
     Active Substance: LITHIUM CARBONATE
     Indication: OBSESSIVE-COMPULSIVE DISORDER
  7. LITHIUM CARBONATE. [Suspect]
     Active Substance: LITHIUM CARBONATE
     Indication: MAJOR DEPRESSION
  8. ZUCLOPENTHIXOL DECANOATE [Suspect]
     Active Substance: ZUCLOPENTHIXOL DECANOATE
     Indication: MAJOR DEPRESSION
  9. ZUCLOPENTHIXOL DECANOATE [Suspect]
     Active Substance: ZUCLOPENTHIXOL DECANOATE
     Indication: PSYCHOTIC DISORDER
  10. QUETIAPINA [Suspect]
     Active Substance: QUETIAPINE
     Indication: MAJOR DEPRESSION
     Dosage: 25 MG, QD
     Route: 048
  11. QUETIAPINA [Suspect]
     Active Substance: QUETIAPINE
     Indication: OBSESSIVE-COMPULSIVE DISORDER
  12. LORAZEPAM. [Suspect]
     Active Substance: LORAZEPAM
     Indication: MAJOR DEPRESSION
     Dosage: 1.25 MG, QD
     Route: 048
  13. LITHIUM CARBONATE. [Suspect]
     Active Substance: LITHIUM CARBONATE
     Indication: BIPOLAR DISORDER
     Dosage: 900 MG, QD
     Route: 048
  14. LITHIUM CARBONATE. [Suspect]
     Active Substance: LITHIUM CARBONATE
     Indication: PSYCHOTIC DISORDER
  15. QUETIAPINA [Suspect]
     Active Substance: QUETIAPINE
     Indication: PSYCHOTIC DISORDER
  16. LORAZEPAM. [Suspect]
     Active Substance: LORAZEPAM
     Indication: OBSESSIVE-COMPULSIVE DISORDER

REACTIONS (14)
  - Akathisia [Unknown]
  - Extrapyramidal disorder [Recovering/Resolving]
  - Metabolic syndrome [Recovering/Resolving]
  - Cotard^s syndrome [Recovering/Resolving]
  - Bulimia nervosa [Unknown]
  - Feeling abnormal [Unknown]
  - Social avoidant behaviour [Unknown]
  - Treatment noncompliance [Unknown]
  - Electrocardiogram QT prolonged [Recovering/Resolving]
  - Obesity [Recovering/Resolving]
  - Compulsions [Unknown]
  - Asthenia [Unknown]
  - Arrhythmia [Unknown]
  - Hypothyroidism [Recovering/Resolving]
